FAERS Safety Report 6902829-4 (Version None)
Quarter: 2010Q3

REPORT INFORMATION
  Report Type: 
  Country: None (occurrence: None)
  Receive Date: 20100803
  Receipt Date: 20080620
  Transmission Date: 20110219
  Serious: No
  Sender: FDA-Public Use
  Company Number: US-PFIZER INC-2008052908

PATIENT
  Age: 46 Year
  Sex: Female

DRUGS (6)
  1. LYRICA [Suspect]
     Dates: start: 20071210
  2. OXYCODONE [Concomitant]
     Route: 048
     Dates: start: 20061116
  3. IMITREX [Concomitant]
     Route: 048
     Dates: start: 20080321
  4. FLEXERIL [Concomitant]
     Route: 048
     Dates: start: 20080117
  5. AMBIEN [Concomitant]
     Route: 048
     Dates: start: 20030501
  6. ATIVAN [Concomitant]
     Route: 048
     Dates: start: 20080117

REACTIONS (1)
  - OEDEMA PERIPHERAL [None]
